FAERS Safety Report 7642607-4 (Version None)
Quarter: 2011Q3

REPORT INFORMATION
  Report Type: 
  Country: None (occurrence: None)
  Receive Date: 20110728
  Receipt Date: 20110727
  Transmission Date: 20111222
  Serious: Yes (Death)
  Sender: FDA-Public Use
  Company Number: VE-PFIZER INC-2011168379

PATIENT
  Age: 77 Year
  Sex: Female

DRUGS (3)
  1. FOLIC ACID [Concomitant]
     Dosage: 5 MG, UNK
  2. BENUTREX [Concomitant]
  3. ZOLOFT [Suspect]
     Dosage: 50 MG, 1X/DAY
     Route: 048
     Dates: start: 20101201, end: 20110121

REACTIONS (1)
  - CEREBROVASCULAR ACCIDENT [None]
